FAERS Safety Report 4883064-0 (Version None)
Quarter: 2006Q1

REPORT INFORMATION
  Report Type: 
  Country: None (occurrence: None)
  Receive Date: 20060118
  Receipt Date: 20051216
  Transmission Date: 20060701
  Serious: Yes (Hospitalization)
  Sender: FDA-Public Use
  Company Number: FR-BRISTOL-MYERS SQUIBB COMPANY-13223151

PATIENT
  Age: 56 Year
  Sex: Male

DRUGS (14)
  1. CETUXIMAB [Suspect]
     Indication: SQUAMOUS CELL CARCINOMA
     Dosage: MOST RECENT INFUSION 13-DEC-05 (9TH INFUSION).
     Route: 041
     Dates: start: 20051007
  2. CISPLATIN [Suspect]
     Indication: SQUAMOUS CELL CARCINOMA
     Dosage: MOST RECENT INFUSION 29-NOV-05 (3RD INFUSION).
     Route: 042
     Dates: start: 20051007
  3. FLUOROURACIL [Suspect]
     Indication: SQUAMOUS CELL CARCINOMA
     Dosage: MOST RECENT INFUSION 29-NOV-05 (3RD INFUSION). GIVEN 1000 MG/M2 CI.
     Route: 042
     Dates: start: 20051007
  4. LEVOTHYROXINE SODIUM [Concomitant]
  5. ZOLPIDEM TARTRATE [Concomitant]
  6. SODIUM BICARBONATE [Concomitant]
  7. PRIMPERAN INJ [Concomitant]
  8. DOLIPRANE [Concomitant]
  9. ERYTHROMYCIN [Concomitant]
  10. LEXOMIL [Concomitant]
  11. DURAGESIC-100 [Concomitant]
  12. MOPRAL [Concomitant]
  13. PLITICAN [Concomitant]
  14. ZOPHREN [Concomitant]

REACTIONS (1)
  - HYPERTENSION [None]
